FAERS Safety Report 14444005 (Version 1)
Quarter: 2018Q1

REPORT INFORMATION
  Report Type: Other
  Country: None (occurrence: CA)
  Receive Date: 20180125
  Receipt Date: 20180125
  Transmission Date: 20180509
  Serious: Yes (Hospitalization, Other)
  Sender: FDA-Public Use
  Company Number: CA-LABORATOIRE HRA PHARMA-2040838

PATIENT
  Age: 63 Year
  Sex: Female

DRUGS (2)
  1. METOPIRONE [Suspect]
     Active Substance: METYRAPONE
     Indication: HYPERADRENOCORTICISM
  2. KETOCONAZOLE. [Suspect]
     Active Substance: KETOCONAZOLE

REACTIONS (11)
  - Acute respiratory distress syndrome [Recovering/Resolving]
  - Unmasking of previously unidentified disease [Recovering/Resolving]
  - Pneumonia cytomegaloviral [Recovering/Resolving]
  - Pneumonia [Recovering/Resolving]
  - Urinary tract infection [Recovering/Resolving]
  - Staphylococcal bacteraemia [Recovering/Resolving]
  - Atrial fibrillation [Recovering/Resolving]
  - Respiratory failure [Recovering/Resolving]
  - Acute kidney injury [Recovering/Resolving]
  - Hypoxia [Recovering/Resolving]
  - Pneumocystis jirovecii pneumonia [Recovering/Resolving]
